FAERS Safety Report 9011511 (Version 1)
Quarter: 2013Q1

REPORT INFORMATION
  Report Type: Spontaneous
  Country: BR (occurrence: BR)
  Receive Date: 20130108
  Receipt Date: 20130108
  Transmission Date: 20140127
  Serious: Yes (Hospitalization, Other)
  Sender: FDA-Public Use
  Company Number: BR-JNJFOC-20130101654

PATIENT
  Age: 17 Year
  Sex: Male

DRUGS (11)
  1. DOXORUBICIN [Suspect]
     Indication: BURKITT^S LYMPHOMA
     Route: 042
  2. CYCLOPHOSPHAMIDE [Suspect]
     Indication: BURKITT^S LYMPHOMA
     Route: 065
  3. VINCRISTINE [Suspect]
     Indication: BURKITT^S LYMPHOMA
     Route: 065
  4. METHOTREXATE [Suspect]
     Indication: BURKITT^S LYMPHOMA
     Route: 065
  5. IFOSFAMIDE [Suspect]
     Indication: BURKITT^S LYMPHOMA
     Route: 065
  6. CARBOPLATIN [Suspect]
     Indication: BURKITT^S LYMPHOMA
     Route: 065
  7. ETOPOSIDE [Suspect]
     Indication: BURKITT^S LYMPHOMA
     Route: 065
  8. PREDNISONE [Suspect]
     Indication: BURKITT^S LYMPHOMA
     Route: 065
  9. FLUCONAZOLE [Concomitant]
     Indication: ANTIFUNGAL PROPHYLAXIS
     Dosage: FOR 15 DAYS
     Route: 065
  10. CASPOFUNGIN [Concomitant]
     Indication: ANTIFUNGAL PROPHYLAXIS
     Dosage: FOR 23 DAYS
     Route: 065
  11. ANTIBIOTICS [Concomitant]

REACTIONS (3)
  - Febrile neutropenia [Unknown]
  - Pleural effusion [Recovering/Resolving]
  - Pulmonary mycosis [Recovering/Resolving]
